FAERS Safety Report 8364611-3 (Version None)
Quarter: 2012Q2

REPORT INFORMATION
  Report Type: 
  Country: None (occurrence: None)
  Receive Date: 20120514
  Receipt Date: 20120510
  Transmission Date: 20120825
  Serious: Yes (Other)
  Sender: FDA-Public Use
  Company Number: ADR-2012-00718

PATIENT
  Sex: Female

DRUGS (1)
  1. BACLOFEN [Suspect]
     Indication: CEREBRAL PALSY
     Dosage: 320 MCG/DAY

REACTIONS (3)
  - NEOPLASM SKIN [None]
  - DEVICE DISLOCATION [None]
  - INFUSION SITE REACTION [None]
